FAERS Safety Report 8951248 (Version 2)
Quarter: 2013Q1

REPORT INFORMATION
  Report Type: Spontaneous
  Country: DE (occurrence: DE)
  Receive Date: 20121207
  Receipt Date: 20130208
  Transmission Date: 20140127
  Serious: Yes (Hospitalization)
  Sender: FDA-Public Use
  Company Number: DE-BIOGENIDEC-2012BI056855

PATIENT
  Age: 56 Year
  Sex: Female

DRUGS (3)
  1. TYSABRI [Suspect]
     Indication: MULTIPLE SCLEROSIS
     Route: 042
     Dates: start: 201008, end: 20121130
  2. LISINOPRIL [Concomitant]
     Indication: HYPERTENSION
  3. SERTRALIN [Concomitant]
     Indication: DEPRESSION

REACTIONS (1)
  - Breast cancer stage II [Not Recovered/Not Resolved]
